FAERS Safety Report 8197432 (Version 3)
Quarter: 2013Q1

REPORT INFORMATION
  Report Type: Spontaneous
  Country: FI (occurrence: FI)
  Receive Date: 20111024
  Receipt Date: 20130325
  Transmission Date: 20140127
  Serious: Yes (Hospitalization)
  Sender: FDA-Public Use
  Company Number: FI-009507513-1110FIN00011

PATIENT
  Age: 76 Year
  Sex: Male
  Weight: 79 kg

DRUGS (10)
  1. JANUVIA [Suspect]
     Indication: DIABETES MELLITUS
     Dosage: 100 MG, QD
     Route: 048
     Dates: start: 20110217, end: 20110516
  2. COMTESS [Interacting]
     Indication: PARKINSON^S DISEASE
     Dosage: 1 G, QD
     Route: 048
     Dates: start: 20090306
  3. REQUIP [Interacting]
     Indication: PARKINSON^S DISEASE
     Dosage: 24 MG, QD
     Route: 048
     Dates: start: 20091130
  4. MADOPAR [Interacting]
     Indication: PARKINSON^S DISEASE
     Dosage: 1.5 DF, QD
     Route: 048
     Dates: start: 20090901
  5. SINEMET [Interacting]
     Dosage: 5 DF, QD
     Route: 048
     Dates: start: 20060306
  6. SINEMET [Interacting]
     Indication: PARKINSON^S DISEASE
     Dosage: 2 DF, QD
     Route: 048
     Dates: start: 20060306
  7. ASASANTIN RETARD [Concomitant]
     Dosage: UNK UNK, QD
     Route: 030
     Dates: start: 20090306
  8. COHEMIN DEPOT [Concomitant]
     Indication: PERNICIOUS ANAEMIA
     Route: 030
     Dates: start: 20100215
  9. RETAFER [Concomitant]
     Indication: IRON DEFICIENCY
     Dosage: 100 MG, QD
     Route: 048
  10. FURESIS [Concomitant]
     Dosage: 40 MG, QD
     Route: 048

REACTIONS (6)
  - Drug interaction [Recovered/Resolved]
  - Weight decreased [Recovered/Resolved]
  - Nausea [Recovered/Resolved]
  - Vomiting [Recovered/Resolved]
  - Fall [Recovered/Resolved]
  - Oedema [Recovered/Resolved]
